FAERS Safety Report 19315437 (Version 1)
Quarter: 2021Q2

REPORT INFORMATION
  Report Type: Spontaneous
  Country: SA (occurrence: SA)
  Receive Date: 20210527
  Receipt Date: 20210527
  Transmission Date: 20210717
  Serious: Yes (Hospitalization, Other)
  Sender: FDA-Public Use
  Company Number: SA-SA-2021SA168601

PATIENT
  Age: 76 Year
  Sex: Male

DRUGS (21)
  1. PREDNISONE. [Suspect]
     Active Substance: PREDNISONE
     Dosage: 30 MG, QD (TAPERING DOSE)
  2. PREDNISONE. [Suspect]
     Active Substance: PREDNISONE
     Dosage: 30 MG, QD
  3. PREDNISONE. [Suspect]
     Active Substance: PREDNISONE
     Dosage: 15 MG TAPERING DOSE
  4. PREDNISONE. [Suspect]
     Active Substance: PREDNISONE
     Dosage: 5 MG TAPERING DOSE
  5. PREDNISONE. [Suspect]
     Active Substance: PREDNISONE
     Dosage: 20 MG, BID
  6. ISONIAZID. [Suspect]
     Active Substance: ISONIAZID
     Indication: DISSEMINATED TUBERCULOSIS
     Dosage: 300 MG, QD
  7. PREDNISONE. [Suspect]
     Active Substance: PREDNISONE
     Indication: DISSEMINATED TUBERCULOSIS
     Dosage: 20 NG, QD
  8. PREDNISONE. [Suspect]
     Active Substance: PREDNISONE
     Dosage: 35 MG, QD
  9. PREDNISONE. [Suspect]
     Active Substance: PREDNISONE
     Dosage: 25 MG, QD
  10. ETHAMBUTOL [Suspect]
     Active Substance: ETHAMBUTOL HYDROCHLORIDE
     Indication: DISSEMINATED TUBERCULOSIS
     Dosage: 1000 MG, QD
  11. CIPROFLOXACIN. [Suspect]
     Active Substance: CIPROFLOXACIN
     Indication: PULMONARY TUBERCULOSIS
     Dosage: 500 MG, BID
  12. AMIKACIN. [Suspect]
     Active Substance: AMIKACIN
     Indication: PULMONARY TUBERCULOSIS
     Dosage: 750 MG, QOD
  13. PREDNISONE. [Suspect]
     Active Substance: PREDNISONE
     Dosage: 40 MG, QD
  14. PREDNISONE. [Suspect]
     Active Substance: PREDNISONE
     Dosage: 35 MG, QD (TAPERING DOSE)
  15. RIFAMPICIN [Suspect]
     Active Substance: RIFAMPIN
     Indication: DISSEMINATED TUBERCULOSIS
     Dosage: 600 MG, QD
  16. ETHAMBUTOL [Suspect]
     Active Substance: ETHAMBUTOL HYDROCHLORIDE
     Indication: PULMONARY TUBERCULOSIS
  17. PYRAZINAMIDE. [Suspect]
     Active Substance: PYRAZINAMIDE
     Indication: DISSEMINATED TUBERCULOSIS
     Dosage: 250 MG, QD
  18. PREDNISONE. [Suspect]
     Active Substance: PREDNISONE
     Dosage: 20 MG, QD
  19. AMIKACIN. [Suspect]
     Active Substance: AMIKACIN
     Indication: DISSEMINATED TUBERCULOSIS
  20. PREDNISONE. [Suspect]
     Active Substance: PREDNISONE
     Dosage: 25 MG, QD (TAPERING DOSE)
  21. CIPROFLOXACIN. [Suspect]
     Active Substance: CIPROFLOXACIN
     Indication: DISSEMINATED TUBERCULOSIS

REACTIONS (14)
  - Disseminated tuberculosis [Recovered/Resolved]
  - Pulmonary mass [Recovered/Resolved]
  - Lung consolidation [Recovered/Resolved]
  - Organising pneumonia [Recovered/Resolved]
  - Respiratory failure [Recovered/Resolved]
  - Hypoxia [Recovered/Resolved]
  - Rebound effect [Recovered/Resolved]
  - Tachycardia [Recovered/Resolved]
  - Lymphadenopathy mediastinal [Recovered/Resolved]
  - Pulmonary tuberculosis [Recovered/Resolved]
  - Pyrexia [Recovered/Resolved]
  - Tachypnoea [Recovered/Resolved]
  - Rales [Recovered/Resolved]
  - Paradoxical drug reaction [Recovered/Resolved]
